FAERS Safety Report 23686896 (Version 1)
Quarter: 2024Q1

REPORT INFORMATION
  Report Type: Spontaneous
  Country: US (occurrence: None)
  Receive Date: 20240328
  Receipt Date: 20240328
  Transmission Date: 20240410
  Serious: Yes (Death)
  Sender: FDA-Public Use
  Company Number: None

PATIENT
  Age: 13 Month
  Sex: Male

DRUGS (6)
  1. LIVMARLI [Suspect]
     Active Substance: MARALIXIBAT CHLORIDE
     Indication: Alagille syndrome
     Dosage: FREQUENCY : DAILY;?OTHER ROUTE : G-TUBE;?
     Route: 050
     Dates: start: 20230412, end: 20230423
  2. ATARAX [Concomitant]
     Active Substance: HYDROXYZINE HYDROCHLORIDE
     Dates: start: 20230331, end: 20230423
  3. RIFAMPIN [Concomitant]
     Active Substance: RIFAMPIN
     Dates: start: 20230331, end: 20230423
  4. QUESTRAN [Concomitant]
     Active Substance: CHOLESTYRAMINE
     Dates: start: 20230331, end: 20230423
  5. URSODIOL [Concomitant]
     Active Substance: URSODIOL
     Dates: end: 20230423
  6. LASIX [Concomitant]
     Active Substance: FUROSEMIDE
     Dates: start: 20230331, end: 20230427

REACTIONS (5)
  - Gastrointestinal haemorrhage [None]
  - Lactic acidosis [None]
  - Toxicity to various agents [None]
  - Sepsis [None]
  - Liver disorder [None]

NARRATIVE: CASE EVENT DATE: 20230419
